FAERS Safety Report 25008581 (Version 1)
Quarter: 2025Q1

REPORT INFORMATION
  Report Type: Spontaneous
  Country: IN (occurrence: IN)
  Receive Date: 20250225
  Receipt Date: 20250225
  Transmission Date: 20250409
  Serious: Yes (Other)
  Sender: LUPIN
  Company Number: IN-LUPIN PHARMACEUTICALS INC.-2025-01654

PATIENT
  Age: 22 Year
  Sex: Male

DRUGS (3)
  1. RIFAMPIN [Suspect]
     Active Substance: RIFAMPIN
     Indication: Tuberculosis
     Route: 065
  2. CYCLOSERINE [Interacting]
     Active Substance: CYCLOSERINE
     Indication: Tuberculosis
     Route: 065
  3. ISONIAZID [Interacting]
     Active Substance: ISONIAZID
     Indication: Tuberculosis
     Route: 065

REACTIONS (3)
  - Psychotic disorder [Recovered/Resolved]
  - Drug interaction [Unknown]
  - Drug resistance [Unknown]
